FAERS Safety Report 11969565 (Version 1)
Quarter: 2016Q1

REPORT INFORMATION
  Report Type: Spontaneous
  Country: US (occurrence: US)
  Receive Date: 20160128
  Receipt Date: 20160128
  Transmission Date: 20160526
  Serious: Yes (Hospitalization, Other)
  Sender: FDA-Public Use
  Company Number: US-ACTAVIS-2016-01668

PATIENT
  Age: 56 Year
  Sex: Female

DRUGS (3)
  1. WARFARIN (UNKNOWN) [Concomitant]
     Active Substance: WARFARIN
     Indication: DEEP VEIN THROMBOSIS
     Dosage: UNK
     Route: 065
  2. PREDNISONE (WATSON LABORATORIES) [Suspect]
     Active Substance: PREDNISONE
     Indication: MALABSORPTION
     Dosage: UNK
     Route: 065
  3. BUDESONIDE (WATSON LABORATORIES) [Suspect]
     Active Substance: BUDESONIDE
     Indication: MALABSORPTION
     Dosage: UNK
     Route: 065

REACTIONS (1)
  - Condition aggravated [Recovering/Resolving]
